FAERS Safety Report 8343491-6 (Version None)
Quarter: 2012Q2

REPORT INFORMATION
  Report Type: 
  Country: None (occurrence: None)
  Receive Date: 20120508
  Receipt Date: 20120505
  Transmission Date: 20120825
  Serious: Yes (Hospitalization)
  Sender: FDA-Public Use
  Company Number: PHHY2012NL034101

PATIENT
  Sex: Female

DRUGS (3)
  1. EFUDEX [Concomitant]
     Dosage: UNK
  2. ROZEX [Concomitant]
     Dosage: UNK
  3. DIOVAN [Suspect]
     Dosage: 160 MG
     Dates: end: 20120216

REACTIONS (8)
  - RASH [None]
  - ERYTHEMA [None]
  - INTERSTITIAL LUNG DISEASE [None]
  - RENAL IMPAIRMENT [None]
  - LYMPHADENOPATHY [None]
  - TOXIC SKIN ERUPTION [None]
  - SJOGREN'S SYNDROME [None]
  - WEGENER'S GRANULOMATOSIS [None]
